FAERS Safety Report 19567064 (Version 4)
Quarter: 2022Q1

REPORT INFORMATION
  Report Type: Spontaneous
  Country: US (occurrence: US)
  Receive Date: 20210714
  Receipt Date: 20220111
  Transmission Date: 20220423
  Serious: Yes (Other)
  Sender: FDA-Public Use
  Company Number: US-SA-SAC20210713000096

PATIENT
  Age: 45 Year
  Sex: Male
  Weight: 106.5 kg

DRUGS (10)
  1. ELOCTATE [Suspect]
     Active Substance: (1-743)-(1638-2332)-BLOOD-COAGULATION FACTOR VIII (SYNTHETIC HUMAN) FUSION PROTEIN WITH IMMUNOGLOBUL
     Indication: Factor VIII deficiency
     Dosage: UNK
     Dates: start: 201610
  2. ELOCTATE [Suspect]
     Active Substance: (1-743)-(1638-2332)-BLOOD-COAGULATION FACTOR VIII (SYNTHETIC HUMAN) FUSION PROTEIN WITH IMMUNOGLOBUL
     Indication: Factor VIII deficiency
     Dosage: UNK
     Dates: start: 201610
  3. ELOCTATE [Suspect]
     Active Substance: (1-743)-(1638-2332)-BLOOD-COAGULATION FACTOR VIII (SYNTHETIC HUMAN) FUSION PROTEIN WITH IMMUNOGLOBUL
     Indication: Factor VIII deficiency
     Dosage: 600 IU, QW
     Route: 042
     Dates: start: 201801
  4. ELOCTATE [Suspect]
     Active Substance: (1-743)-(1638-2332)-BLOOD-COAGULATION FACTOR VIII (SYNTHETIC HUMAN) FUSION PROTEIN WITH IMMUNOGLOBUL
     Indication: Factor VIII deficiency
     Dosage: 600 IU, QW
     Route: 042
     Dates: start: 201801
  5. ELOCTATE [Suspect]
     Active Substance: (1-743)-(1638-2332)-BLOOD-COAGULATION FACTOR VIII (SYNTHETIC HUMAN) FUSION PROTEIN WITH IMMUNOGLOBUL
     Dosage: 600 IU, PRN
     Route: 042
     Dates: start: 201801
  6. ELOCTATE [Suspect]
     Active Substance: (1-743)-(1638-2332)-BLOOD-COAGULATION FACTOR VIII (SYNTHETIC HUMAN) FUSION PROTEIN WITH IMMUNOGLOBUL
     Dosage: 600 IU, PRN
     Route: 042
     Dates: start: 201801
  7. ELOCTATE [Suspect]
     Active Substance: (1-743)-(1638-2332)-BLOOD-COAGULATION FACTOR VIII (SYNTHETIC HUMAN) FUSION PROTEIN WITH IMMUNOGLOBUL
     Dosage: 6000 IU EVERY 10-14 DAYS
     Route: 042
     Dates: start: 20210710
  8. ELOCTATE [Suspect]
     Active Substance: (1-743)-(1638-2332)-BLOOD-COAGULATION FACTOR VIII (SYNTHETIC HUMAN) FUSION PROTEIN WITH IMMUNOGLOBUL
     Dosage: 6000 IU EVERY 10-14 DAYS
     Route: 042
     Dates: start: 20210710
  9. ELOCTATE [Suspect]
     Active Substance: (1-743)-(1638-2332)-BLOOD-COAGULATION FACTOR VIII (SYNTHETIC HUMAN) FUSION PROTEIN WITH IMMUNOGLOBUL
     Dosage: 6000 IU, QOW FOR PROPHYLAXIS AND DAILY AS NEEDED FOR 2 ADDITIONAL DOSES AS DIRECTED
     Route: 042
     Dates: start: 202107
  10. ELOCTATE [Suspect]
     Active Substance: (1-743)-(1638-2332)-BLOOD-COAGULATION FACTOR VIII (SYNTHETIC HUMAN) FUSION PROTEIN WITH IMMUNOGLOBUL
     Dosage: 6000 IU, QOW FOR PROPHYLAXIS AND DAILY AS NEEDED FOR 2 ADDITIONAL DOSES AS DIRECTED
     Route: 042
     Dates: start: 202107

REACTIONS (7)
  - Haemorrhage [Unknown]
  - Haemarthrosis [Unknown]
  - Epistaxis [Unknown]
  - Contusion [Unknown]
  - Weight fluctuation [Unknown]
  - Treatment noncompliance [Unknown]
  - Inappropriate schedule of product administration [Unknown]

NARRATIVE: CASE EVENT DATE: 20210601
